FAERS Safety Report 9306665 (Version 1)
Quarter: 2013Q2

REPORT INFORMATION
  Report Type: Spontaneous
  Country: US (occurrence: US)
  Receive Date: 20130523
  Receipt Date: 20130523
  Transmission Date: 20140414
  Serious: No
  Sender: FDA-Public Use
  Company Number: US-ALEXION-A201300824

PATIENT
  Sex: Male
  Weight: 19.05 kg

DRUGS (11)
  1. SOLIRIS 300MG [Suspect]
     Indication: HAEMOLYTIC URAEMIC SYNDROME
     Dosage: 300 MG, SINGLE
     Route: 042
     Dates: start: 20120619, end: 20120619
  2. SOLIRIS 300MG [Suspect]
     Dosage: 600 MG, Q2W
     Route: 042
  3. PROGRAF [Concomitant]
     Indication: PROPHYLAXIS AGAINST TRANSPLANT REJECTION
     Dosage: 1 MG, BID
  4. CELLCEPT [Concomitant]
     Indication: PROPHYLAXIS AGAINST TRANSPLANT REJECTION
     Dosage: 250 MG, BID
  5. PREDNISONE [Concomitant]
     Indication: PROPHYLAXIS AGAINST TRANSPLANT REJECTION
     Dosage: 25 MG, QOD
  6. AMLODIPINE [Concomitant]
     Indication: BLOOD PRESSURE
     Dosage: 2.5 MG, BID
  7. BACTRIM [Concomitant]
     Indication: INFECTION PROPHYLAXIS
     Dosage: 100 MG, QD
  8. NASONEX [Concomitant]
     Indication: HYPERSENSITIVITY
     Dosage: UNK, DAILY
  9. ZYRTEC [Concomitant]
     Indication: HYPERSENSITIVITY
     Dosage: 5 MG, QD
  10. QVAR [Concomitant]
     Indication: ASTHMA
     Dosage: UNK, PRN
  11. XOPENEX [Concomitant]
     Indication: ASTHMA
     Dosage: UNK, PRN

REACTIONS (1)
  - Gastroenteritis viral [Unknown]
